FAERS Safety Report 23710583 (Version 1)
Quarter: 2024Q2

REPORT INFORMATION
  Report Type: Spontaneous
  Country: US (occurrence: US)
  Receive Date: 20240405
  Receipt Date: 20240405
  Transmission Date: 20240715
  Serious: No
  Sender: FDA-Public Use
  Company Number: US-002147023-NVSC2024US067474

PATIENT

DRUGS (1)
  1. KISQALI FEMARA CO-PACK [Suspect]
     Active Substance: LETROZOLE\RIBOCICLIB
     Indication: Metastases to bone
     Dosage: UNK
     Route: 065

REACTIONS (4)
  - Blood alkaline phosphatase abnormal [Unknown]
  - Hot flush [Recovered/Resolved]
  - Hyperhidrosis [Recovering/Resolving]
  - Arthralgia [Unknown]
